FAERS Safety Report 4348646-3 (Version None)
Quarter: 2004Q1

REPORT INFORMATION
  Report Type: 
  Country: None (occurrence: None)
  Receive Date: 20040325
  Receipt Date: 20040130
  Transmission Date: 20041129
  Serious: No
  Sender: FDA-Public Use
  Company Number: USA030948400

PATIENT
  Age: 88 Year
  Sex: Female

DRUGS (6)
  1. FORTEO [Suspect]
     Indication: OSTEOPOROSIS
     Dates: start: 20030820
  2. ASPIRIN [Concomitant]
  3. FOLIC ACID [Concomitant]
  4. TENORMIN [Concomitant]
  5. PREDNISONE [Concomitant]
  6. HIGH BLOOD PRESSURE MEDICATION [Concomitant]

REACTIONS (5)
  - ALOPECIA [None]
  - CONSTIPATION [None]
  - ERYTHEMA [None]
  - MUSCULAR WEAKNESS [None]
  - PRURITUS [None]
